FAERS Safety Report 9000778 (Version 1)
Quarter: 2013Q1

REPORT INFORMATION
  Report Type: Spontaneous
  Country: US (occurrence: US)
  Receive Date: 20130107
  Receipt Date: 20130107
  Transmission Date: 20140127
  Serious: No
  Sender: FDA-Public Use
  Company Number: US-COVIDIEN/TYCO HEALTHCARE/MALLINCKRODT-T201202447

PATIENT
  Age: 80 Year
  Sex: Male

DRUGS (6)
  1. OPTIRAY [Suspect]
     Indication: UROGRAM
     Dosage: 100 ML, SINGLE
     Route: 042
     Dates: start: 20120521, end: 20120521
  2. ASA [Concomitant]
     Dosage: UNK
     Dates: start: 20120521
  3. NORVASC [Concomitant]
     Dosage: UNK
     Dates: start: 20120521
  4. FLOMAX                             /00889901/ [Concomitant]
     Dosage: UNK
     Dates: start: 20120521
  5. TRAZODONE [Concomitant]
     Dosage: UNK
     Dates: start: 20120521
  6. SIMVASTATIN [Concomitant]
     Dosage: UNK
     Dates: start: 20120521

REACTIONS (1)
  - Rash [Recovered/Resolved]
